FAERS Safety Report 5127594-5 (Version None)
Quarter: 2006Q4

REPORT INFORMATION
  Report Type: 
  Country: None (occurrence: None)
  Receive Date: 20061016
  Receipt Date: 20061002
  Transmission Date: 20070319
  Serious: Yes (Other)
  Sender: FDA-Public Use
  Company Number: PHEH2006US12395

PATIENT
  Age: 11 Year
  Sex: Female

DRUGS (3)
  1. RISPERDAL [Concomitant]
  2. CONCERTA [Concomitant]
  3. TRILEPTAL [Suspect]
     Indication: CONVULSION
     Dosage: 300 MG, BID
     Dates: start: 20030101

REACTIONS (2)
  - LYMPHOCYTE COUNT DECREASED [None]
  - WHITE BLOOD CELL COUNT DECREASED [None]
